FAERS Safety Report 7414136-4 (Version None)
Quarter: 2011Q2

REPORT INFORMATION
  Report Type: 
  Country: None (occurrence: None)
  Receive Date: 20110414
  Receipt Date: 20110407
  Transmission Date: 20111010
  Serious: Yes (Hospitalization)
  Sender: FDA-Public Use
  Company Number: DE-PFIZER INC-2011080548

PATIENT
  Age: 30 Year
  Sex: Male

DRUGS (5)
  1. BLINDED THERAPY [Suspect]
     Indication: HEPATITIS C
     Dosage: UNK
     Dates: start: 20110221
  2. PEGINTERFERON ALFA-2A [Suspect]
     Indication: HEPATITIS C
     Dosage: 180 MCG, WEEKLY
     Route: 058
     Dates: start: 20110221
  3. PARACETAMOL [Suspect]
  4. PANTOPRAZOLE [Suspect]
     Dosage: UNK
  5. RIBAVIRIN [Suspect]
     Indication: HEPATITIS C
     Dosage: 1200 MCG, UNK
     Route: 048
     Dates: start: 20110221

REACTIONS (1)
  - SUICIDE ATTEMPT [None]
